FAERS Safety Report 9187059 (Version 2)
Quarter: 2013Q1

REPORT INFORMATION
  Report Type: Spontaneous
  Country: IT (occurrence: IT)
  Receive Date: 20130325
  Receipt Date: 20130327
  Transmission Date: 20140127
  Serious: Yes (Other)
  Sender: FDA-Public Use
  Company Number: IT-SANOFI-AVENTIS-2013SA026874

PATIENT
  Age: 77 Year
  Sex: Female

DRUGS (2)
  1. ARAVA [Suspect]
     Indication: RHEUMATOID ARTHRITIS
     Route: 048
     Dates: start: 20130101
  2. CORTISONE [Concomitant]

REACTIONS (3)
  - Hip fracture [Recovering/Resolving]
  - Vertigo [Recovering/Resolving]
  - Fall [Recovering/Resolving]
